FAERS Safety Report 7779646-9 (Version None)
Quarter: 2011Q3

REPORT INFORMATION
  Report Type: 
  Country: None (occurrence: None)
  Receive Date: 20110927
  Receipt Date: 20100824
  Transmission Date: 20111222
  Serious: Yes (Other)
  Sender: FDA-Public Use
  Company Number: US-ASTRAZENECA-2008UW27255

PATIENT
  Age: 22 Year
  Sex: Female
  Weight: 101.6 kg

DRUGS (3)
  1. SEROQUEL [Suspect]
     Indication: DEPRESSION
     Route: 048
     Dates: start: 19920101, end: 20000101
  2. SEROQUEL [Suspect]
     Indication: BIPOLAR DISORDER
     Route: 048
     Dates: start: 19920101, end: 20000101
  3. ABILIFY [Concomitant]

REACTIONS (15)
  - CHEST PAIN [None]
  - OBESITY [None]
  - WEIGHT INCREASED [None]
  - NEUROFIBROMATOSIS [None]
  - TYPE 2 DIABETES MELLITUS [None]
  - HYPERLIPIDAEMIA [None]
  - PANCREATITIS [None]
  - TOOTH DISORDER [None]
  - ARTHROPATHY [None]
  - BLOOD CHOLESTEROL INCREASED [None]
  - BLOOD TRIGLYCERIDES INCREASED [None]
  - CARDIAC DISORDER [None]
  - EYE DISORDER [None]
  - HYPOAESTHESIA [None]
  - DIABETES MELLITUS INADEQUATE CONTROL [None]
